FAERS Safety Report 13080759 (Version 2)
Quarter: 2017Q1

REPORT INFORMATION
  Report Type: Spontaneous
  Country: US (occurrence: US)
  Receive Date: 20170103
  Receipt Date: 20170207
  Transmission Date: 20170428
  Serious: Yes (Hospitalization, Other)
  Sender: FDA-Public Use
  Company Number: US-PFIZER INC-2016595216

PATIENT
  Age: 79 Year
  Sex: Female

DRUGS (16)
  1. GENTEAL MILD [Concomitant]
     Active Substance: HYPROMELLOSE 2910 (4000 MPA.S)
     Indication: DARK CIRCLES UNDER EYES
     Dosage: 1X/DAY (1/4 LOWER LID AT BED)
  2. TUMS EX [Concomitant]
     Active Substance: CALCIUM CARBONATE
     Indication: DYSPEPSIA
     Dosage: AS NEEDED
  3. PREMARIN [Suspect]
     Active Substance: ESTROGENS, CONJUGATED
     Dosage: 0.5 G, 2X/WEEK
     Route: 067
     Dates: start: 20161212, end: 20161221
  4. ECHINACEA [Concomitant]
     Active Substance: ECHINACEA, UNSPECIFIED
     Indication: MALAISE
     Dosage: DAILY (1-2 DAILY)
  5. ZOFRAN [Concomitant]
     Active Substance: ONDANSETRON HYDROCHLORIDE
     Indication: NAUSEA
     Dosage: 8 MG, AS NEEDED (EVERY 8 HOURS AS NEEDED)
  6. ZEASORB [Concomitant]
     Active Substance: MICONAZOLE NITRATE
     Indication: FUNGAL SKIN INFECTION
     Dosage: UNK
  7. PREMARIN [Suspect]
     Active Substance: ESTROGENS, CONJUGATED
     Indication: ATROPHIC VULVOVAGINITIS
     Dosage: 0.1 G, CYCLIC (0.1 G TWICE WEEK,  OFF AND ON
     Route: 067
  8. COLACE [Concomitant]
     Active Substance: DOCUSATE SODIUM
     Indication: CONSTIPATION
     Dosage: 300 MG, AS NEEDED (3 DAILY IF NEEDED)
  9. QUESTRAN [Concomitant]
     Active Substance: CHOLESTYRAMINE
     Indication: DIARRHOEA
     Dosage: 4 MG, 2X/DAY (1 PACKET BY MOUTH)
     Route: 048
  10. TYLENOL [Concomitant]
     Active Substance: ACETAMINOPHEN
     Indication: PAIN
     Dosage: 650 MG, AS NEEDED (2X EVERY 6 HRS )
  11. SARNA [Concomitant]
     Indication: RESTLESS LEGS SYNDROME
     Dosage: 3X/DAY
     Route: 061
  12. SYSTANE ULTRA [Concomitant]
     Active Substance: POLYETHYLENE GLYCOL 400\PROPYLENE GLYCOL
     Indication: DRY EYE
     Dosage: DAILY (SEVERAL TIMES DAILY)
     Route: 047
  13. AMBI [Concomitant]
     Indication: SKIN DISCOLOURATION
     Dosage: CYCLIC (2MONTHS ON, 1MONTH OFF)
  14. CLINDAMYCIN. [Concomitant]
     Active Substance: CLINDAMYCIN
     Indication: ANTIBIOTIC THERAPY
     Dosage: 150 MG, (150 MG X 4, 1 HOUR BEFORE DENTAL APPLICATION)
  15. NEUTRASAL [Concomitant]
     Active Substance: CALCIUM CHLORIDE\POTASSIUM CHLORIDE\SODIUM CHLORIDE
     Indication: ORAL PAIN
     Dosage: MOUTH RINSE UP TO 10 TIMES DAILY)
     Route: 048
  16. NEUTRASAL [Concomitant]
     Active Substance: CALCIUM CHLORIDE\POTASSIUM CHLORIDE\SODIUM CHLORIDE
     Indication: DRY MOUTH

REACTIONS (2)
  - Choroid melanoma [Not Recovered/Not Resolved]
  - Squamous cell carcinoma [Recovered/Resolved]

NARRATIVE: CASE EVENT DATE: 20160204
